FAERS Safety Report 15778105 (Version 1)
Quarter: 2018Q4

REPORT INFORMATION
  Report Type: Spontaneous
  Country: US (occurrence: US)
  Receive Date: 20181231
  Receipt Date: 20181231
  Transmission Date: 20190205
  Serious: Yes (Other)
  Sender: FDA-Public Use
  Company Number: US-AKORN PHARMACEUTICALS-2018AKN01928

PATIENT
  Age: 17 Year
  Sex: Male

DRUGS (1)
  1. MYORISAN [Suspect]
     Active Substance: ISOTRETINOIN
     Indication: ACNE CYSTIC
     Dosage: 30 MG, 1X/DAY
     Dates: start: 20181002, end: 20181125

REACTIONS (6)
  - Off label use [Recovered/Resolved]
  - Mood altered [Unknown]
  - Heart rate increased [Unknown]
  - Nightmare [Unknown]
  - Crying [Unknown]
  - Depressed mood [Unknown]

NARRATIVE: CASE EVENT DATE: 2018
